FAERS Safety Report 8523317-8 (Version None)
Quarter: 2012Q3

REPORT INFORMATION
  Report Type: 
  Country: None (occurrence: None)
  Receive Date: 20120720
  Receipt Date: 20100614
  Transmission Date: 20120928
  Serious: Yes (Hospitalization, Disabling, Other)
  Sender: FDA-Public Use
  Company Number: US-BAYER-201014829NA

PATIENT
  Age: 26 Year
  Sex: Female

DRUGS (5)
  1. FE [Concomitant]
  2. TORADOL [Concomitant]
  3. GRIFULVIN V [Concomitant]
     Dosage: 1000 MG (DAILY DOSE), BID,
  4. PONSTEL [Concomitant]
     Dosage: 500 MG, PRN
  5. MIRENA [Suspect]
     Indication: CONTRACEPTION
     Dosage: FREQUENCY: CONTINUOUS
     Route: 015
     Dates: start: 20060623, end: 20060718

REACTIONS (16)
  - RASH GENERALISED [None]
  - PELVIC PAIN [None]
  - NAUSEA [None]
  - PRURITUS [None]
  - DYSFUNCTIONAL UTERINE BLEEDING [None]
  - OEDEMA PERIPHERAL [None]
  - VAGINAL HAEMORRHAGE [None]
  - ABDOMINAL PAIN LOWER [None]
  - MIGRAINE [None]
  - UNEVALUABLE EVENT [None]
  - URTICARIA [None]
  - ABDOMINAL PAIN UPPER [None]
  - TRANSFUSION [None]
  - ANAEMIA [None]
  - ASTHENIA [None]
  - BACK PAIN [None]
